FAERS Safety Report 4378286-1 (Version None)
Quarter: 2004Q2

REPORT INFORMATION
  Report Type: 
  Country: None (occurrence: None)
  Receive Date: 20040609
  Receipt Date: 20040524
  Transmission Date: 20050107
  Serious: Yes (Death)
  Sender: FDA-Public Use
  Company Number: USA040566907

PATIENT
  Age: 82 Year
  Sex: Female
  Weight: 27 kg

DRUGS (3)
  1. ZYPREXA [Suspect]
     Indication: PSYCHOTIC DISORDER
     Dosage: 5 MG
  2. LORAZEPAM [Concomitant]
  3. HALDOL [Concomitant]

REACTIONS (6)
  - CEREBRAL HAEMATOMA [None]
  - COMA [None]
  - FALL [None]
  - HAEMORRHAGIC STROKE [None]
  - HEAD INJURY [None]
  - LACERATION [None]
